FAERS Safety Report 9456670 (Version 2)
Quarter: 2013Q4

REPORT INFORMATION
  Report Type: Spontaneous
  Country: US (occurrence: US)
  Receive Date: 20130813
  Receipt Date: 20131031
  Transmission Date: 20140711
  Serious: Yes (Other)
  Sender: FDA-Public Use
  Company Number: US-PFIZER INC-2013234868

PATIENT
  Age: 58 Year
  Sex: Female
  Weight: 86.17 kg

DRUGS (7)
  1. LYRICA [Suspect]
     Indication: FIBROMYALGIA
     Dosage: 150 MG, 2X/DAY
     Route: 048
     Dates: end: 20130721
  2. LYRICA [Suspect]
     Indication: NEURALGIA
  3. PROZAC [Concomitant]
     Indication: DEPRESSION
     Dosage: UNK
  4. CLONAZEPAM [Concomitant]
     Indication: ANXIETY
     Dosage: 0.5 MG, 2X/DAY
  5. SOMA [Concomitant]
     Dosage: 350 MG, UNK
  6. HYDROCODONE [Concomitant]
     Dosage: UNK
  7. ZOLPIDEM [Concomitant]
     Dosage: UNK

REACTIONS (2)
  - Suicide attempt [Recovered/Resolved]
  - Depression [Recovered/Resolved]
